FAERS Safety Report 7345148-7 (Version None)
Quarter: 2011Q1

REPORT INFORMATION
  Report Type: 
  Country: None (occurrence: None)
  Receive Date: 20110310
  Receipt Date: 20110302
  Transmission Date: 20110831
  Serious: Yes (Hospitalization)
  Sender: FDA-Public Use
  Company Number: DE-JNJFOC-2011002553

PATIENT
  Sex: Male

DRUGS (2)
  1. REGAINE MAENNER [Suspect]
     Indication: ANDROGENETIC ALOPECIA
     Dosage: DAILY DOSE TEXT: UNSPECIFIED
     Route: 061
  2. REGAINE MAENNER [Suspect]
     Route: 061

REACTIONS (2)
  - VESTIBULAR DISORDER [None]
  - DIZZINESS [None]
